FAERS Safety Report 6222462-X (Version None)
Quarter: 2009Q2

REPORT INFORMATION
  Report Type: 
  Country: None (occurrence: None)
  Receive Date: 20090608
  Receipt Date: 20090526
  Transmission Date: 20091009
  Serious: Yes (Hospitalization)
  Sender: FDA-Public Use
  Company Number: TW-GENENTECH-281096

PATIENT
  Sex: Female

DRUGS (4)
  1. TRASTUZUMAB [Suspect]
     Indication: BREAST CANCER
     Dosage: UNK
     Route: 042
     Dates: start: 20090310, end: 20090317
  2. TRASTUZUMAB [Suspect]
     Dosage: UNK
     Route: 042
     Dates: start: 20090407, end: 20090414
  3. TRASTUZUMAB [Suspect]
     Dosage: UNK
     Route: 042
     Dates: start: 20090425, end: 20090512
  4. HUMAN INSULIN [Concomitant]
     Indication: DRUG USE FOR UNKNOWN INDICATION
     Dosage: UNK
     Dates: start: 20090324

REACTIONS (3)
  - GASTROENTERITIS [None]
  - NEUROPATHY PERIPHERAL [None]
  - PNEUMONIA [None]
